FAERS Safety Report 15183088 (Version 1)
Quarter: 2018Q3

REPORT INFORMATION
  Report Type: Report from Study
  Country: FR (occurrence: FR)
  Receive Date: 20180723
  Receipt Date: 20180723
  Transmission Date: 20181010
  Serious: Yes (Other)
  Sender: FDA-Public Use
  Company Number: FR-OTSUKA-2018_025305

PATIENT
  Age: 14 Year
  Sex: Female

DRUGS (2)
  1. ENDOXAN [Suspect]
     Active Substance: CYCLOPHOSPHAMIDE
     Indication: MEDULLOBLASTOMA
     Dosage: 700 MG, UNK
     Route: 042
     Dates: start: 20170505, end: 20170508
  2. BUSULFAN. [Suspect]
     Active Substance: BUSULFAN
     Indication: MEDULLOBLASTOMA
     Dosage: UNK
     Route: 042
     Dates: start: 20170510, end: 20170513

REACTIONS (4)
  - Staphylococcal infection [Recovered/Resolved]
  - Mucosal inflammation [Recovered/Resolved]
  - Toxic skin eruption [Recovered/Resolved]
  - Decreased appetite [Recovered/Resolved]

NARRATIVE: CASE EVENT DATE: 20170515
